FAERS Safety Report 5816072-3 (Version None)
Quarter: 2008Q3

REPORT INFORMATION
  Report Type: 
  Country: None (occurrence: None)
  Receive Date: 20080716
  Receipt Date: 20070802
  Transmission Date: 20090109
  Serious: Yes (Other)
  Sender: FDA-Public Use
  Company Number: 2007US001817

PATIENT
  Age: 74 Year
  Sex: Female
  Weight: 59.9 kg

DRUGS (6)
  1. ADENOSCAN [Suspect]
     Indication: SCAN MYOCARDIAL PERFUSION
     Dosage: 26.7 MG, UID/QD, IV DRIP
     Route: 041
     Dates: start: 20070731, end: 20070731
  2. CARDIOLITE [Concomitant]
  3. GLIPIZIDE XL (GLIPIZIDE) [Concomitant]
  4. ASPIRIN [Concomitant]
  5. FISH OIL, HYDROGENATED (FISH OIL, HYDROGENATED) [Concomitant]
  6. CALCIUM WITH VITAMIN D (ERGOCALCIFEROL, CALCIUM SODIUM LACTATE, CALCIU [Concomitant]

REACTIONS (2)
  - ATRIOVENTRICULAR BLOCK COMPLETE [None]
  - SUPRAVENTRICULAR TACHYCARDIA [None]
